FAERS Safety Report 16840388 (Version 1)
Quarter: 2019Q3

REPORT INFORMATION
  Report Type: Report from Study
  Country: ZA (occurrence: ZA)
  Receive Date: 20190923
  Receipt Date: 20190923
  Transmission Date: 20191005
  Serious: Yes (Hospitalization)
  Sender: FDA-Public Use
  Company Number: PHHY2014ZA079786

PATIENT
  Age: 75 Year
  Sex: Female

DRUGS (5)
  1. ACLASTA [Suspect]
     Active Substance: ZOLEDRONIC ACID
     Dosage: 1 DF (5 MG/100 ML), UNK
     Route: 042
     Dates: start: 2012
  2. ACLASTA [Suspect]
     Active Substance: ZOLEDRONIC ACID
     Dosage: 1 DF (5 MG/100 ML), UNK
     Route: 042
     Dates: start: 2018
  3. ACLASTA [Suspect]
     Active Substance: ZOLEDRONIC ACID
     Dosage: 1 DF (5 MG/100 ML), UNK
     Route: 042
     Dates: start: 2012
  4. ACLASTA [Suspect]
     Active Substance: ZOLEDRONIC ACID
     Dosage: 1 DF (5 MG/100 ML), UNK
     Route: 042
     Dates: start: 2013
  5. ACLASTA [Suspect]
     Active Substance: ZOLEDRONIC ACID
     Indication: OSTEOPOROSIS
     Dosage: 1 DF (5 MG/100 ML), UNK
     Route: 042
     Dates: start: 201106

REACTIONS (3)
  - Muscle strain [Recovered/Resolved]
  - Inappropriate schedule of product administration [Unknown]
  - Bone density decreased [Unknown]

NARRATIVE: CASE EVENT DATE: 20130829
